FAERS Safety Report 6983597-7 (Version None)
Quarter: 2010Q3

REPORT INFORMATION
  Report Type: 
  Country: None (occurrence: None)
  Receive Date: 20100914
  Receipt Date: 20081110
  Transmission Date: 20110219
  Serious: No
  Sender: FDA-Public Use
  Company Number: US-WYE-H06197608

PATIENT
  Age: 55 Year
  Sex: Male
  Weight: 95.34 kg

DRUGS (2)
  1. ADVIL LIQUI-GELS [Suspect]
     Indication: INSOMNIA
     Dosage: 2 LIQUI-GELS AS NEEDED
     Route: 048
  2. ADVIL LIQUI-GELS [Suspect]
     Dosage: 3-4 LIQUI-GELS AT A TIME AS NEEDED
     Route: 048
     Dates: end: 20080901

REACTIONS (5)
  - CHEST PAIN [None]
  - DRUG ADMINISTRATION ERROR [None]
  - DRUG EFFECT DECREASED [None]
  - PRODUCT QUALITY ISSUE [None]
  - WHEEZING [None]
